FAERS Safety Report 6609066-1 (Version None)
Quarter: 2010Q1

REPORT INFORMATION
  Report Type: 
  Country: None (occurrence: None)
  Receive Date: 20100225
  Receipt Date: 20100225
  Transmission Date: 20100710
  Serious: Yes (Hospitalization)
  Sender: FDA-Public Use
  Company Number: None

PATIENT
  Sex: Female
  Weight: 41.8 kg

DRUGS (8)
  1. METHYLPREDNISOLONE 125MG/ VIAL SOL-MEDROL [Suspect]
     Indication: CHRONIC OBSTRUCTIVE PULMONARY DISEASE
     Dosage: 60MG -THEN TAPER- EVERY 8 HOURS IV  (START: 2/18 @ 1800)
     Route: 042
  2. METHYLPREDNISOLONE 125MG/ VIAL SOL-MEDROL [Suspect]
     Indication: CONDITION AGGRAVATED
     Dosage: 60MG -THEN TAPER- EVERY 8 HOURS IV  (START: 2/18 @ 1800)
     Route: 042
  3. PROAIR HFA [Concomitant]
  4. AZITHROMYC [Concomitant]
  5. NEXIUM [Concomitant]
  6. FENTANYL [Concomitant]
  7. ADVAIR HFA [Concomitant]
  8. ATROVEN HFA [Concomitant]

REACTIONS (1)
  - BLOOD GLUCOSE INCREASED [None]
